FAERS Safety Report 11654027 (Version 1)
Quarter: 2015Q4

REPORT INFORMATION
  Report Type: Report from Study
  Country: GR (occurrence: GR)
  Receive Date: 20151023
  Receipt Date: 20151023
  Transmission Date: 20160304
  Serious: Yes (Other)
  Sender: FDA-Public Use
  Company Number: GR-009507513-1510GRC010231

PATIENT

DRUGS (2)
  1. POMALIDOMIDE [Concomitant]
     Active Substance: POMALIDOMIDE
     Indication: PLASMA CELL MYELOMA
     Dosage: 4 MG/DAY ON DAYS 1-21, DURATION { 1 YEAR
     Route: 048
  2. DEXAMETHASONE. [Suspect]
     Active Substance: DEXAMETHASONE
     Indication: PLASMA CELL MYELOMA
     Dosage: 40 MG/DAY OR 20 MG/DAY FOR PATIENTS AGED }=75 YEARS, ON DAYS 1, 8, 15 AND 22, DURATION{1 YEAR
     Route: 048

REACTIONS (11)
  - Fatigue [Unknown]
  - Anaemia [Unknown]
  - Bone pain [Unknown]
  - Asthenia [Unknown]
  - Leukopenia [Unknown]
  - Pneumonia [Unknown]
  - Infection [Unknown]
  - Neutropenia [Unknown]
  - Febrile neutropenia [Unknown]
  - Thrombocytopenia [Unknown]
  - Glucose tolerance impaired [Unknown]
